FAERS Safety Report 15142826 (Version 1)
Quarter: 2018Q3

REPORT INFORMATION
  Report Type: Spontaneous
  Country: US (occurrence: US)
  Receive Date: 20180713
  Receipt Date: 20180713
  Transmission Date: 20181010
  Serious: No
  Sender: FDA-Public Use
  Company Number: US-ASTELLAS-2017US051331

PATIENT
  Age: 82 Year
  Sex: Male

DRUGS (4)
  1. ROGAINE [Interacting]
     Active Substance: MINOXIDIL
     Indication: PRODUCT USED FOR UNKNOWN INDICATION
     Dosage: UNK UNK, UNKNOWN FREQ.
     Route: 065
     Dates: start: 20171203
  2. MYRBETRIQ [Suspect]
     Active Substance: MIRABEGRON
     Indication: NOCTURIA
     Route: 048
     Dates: start: 20171120
  3. MYRBETRIQ [Interacting]
     Active Substance: MIRABEGRON
     Indication: URGE INCONTINENCE
  4. EYE DROPS                          /00256502/ [Concomitant]
     Active Substance: OXYMETAZOLINE
     Indication: GLAUCOMA
     Dosage: UNK UNK, UNKNOWN FREQ.
     Route: 065

REACTIONS (4)
  - Intentional product misuse [Unknown]
  - Alopecia [Unknown]
  - Drug interaction [Unknown]
  - Peripheral swelling [Recovering/Resolving]
